FAERS Safety Report 16330535 (Version 1)
Quarter: 2019Q2

REPORT INFORMATION
  Report Type: Spontaneous
  Country: EG (occurrence: EG)
  Receive Date: 20190520
  Receipt Date: 20190520
  Transmission Date: 20190711
  Serious: Yes (Death, Other)
  Sender: FDA-Public Use
  Company Number: EG-SA-2019SA134842

PATIENT
  Age: 4 Year
  Sex: Male
  Weight: 13 kg

DRUGS (2)
  1. CEREZYME [Suspect]
     Active Substance: IMIGLUCERASE
     Indication: GAUCHER^S DISEASE TYPE III
     Dosage: 60 U/KG/DOSE UNITS
     Route: 041
     Dates: start: 20161030
  2. CEREZYME [Suspect]
     Active Substance: IMIGLUCERASE
     Dosage: 30U/KG/DOSE UNITS, QW
     Route: 041
     Dates: start: 20190406

REACTIONS (2)
  - Status asthmaticus [Fatal]
  - General physical health deterioration [Unknown]

NARRATIVE: CASE EVENT DATE: 20190514
